FAERS Safety Report 5835777-1 (Version None)
Quarter: 2008Q3

REPORT INFORMATION
  Report Type: 
  Country: None (occurrence: None)
  Receive Date: 20080806
  Receipt Date: 20080729
  Transmission Date: 20090109
  Serious: Yes (Death, Other)
  Sender: FDA-Public Use
  Company Number: US-BAYER-200714191BCC

PATIENT
  Sex: Male
  Weight: 73 kg

DRUGS (2)
  1. ASPIRIN [Suspect]
     Indication: ARTERIOSCLEROSIS
     Route: 048
     Dates: start: 20040701, end: 20041201
  2. PLAVIX [Suspect]
     Indication: ARTERIOSCLEROSIS
     Route: 048
     Dates: start: 20040701, end: 20041201

REACTIONS (2)
  - GASTROINTESTINAL HAEMORRHAGE [None]
  - HAEMATEMESIS [None]
